FAERS Safety Report 19543894 (Version 3)
Quarter: 2021Q3

REPORT INFORMATION
  Report Type: Report from Study
  Country: IE (occurrence: IE)
  Receive Date: 20210713
  Receipt Date: 20210805
  Transmission Date: 20211014
  Serious: Yes (Hospitalization)
  Sender: FDA-Public Use
  Company Number: IE-EMD SERONO-9250778

PATIENT
  Age: 21 Year
  Sex: Male

DRUGS (2)
  1. MAVENCLAD [Suspect]
     Active Substance: CLADRIBINE
     Dosage: YEAR ONE WEEK ONE THERAPY: TWO TABLETS ON DAYS ONE TO THREE AND ONE TABLET ON DAYS FOUR AND FIVE
     Route: 048
     Dates: start: 20210726
  2. MAVENCLAD [Suspect]
     Active Substance: CLADRIBINE
     Indication: MULTIPLE SCLEROSIS
     Dosage: YEAR ONE WEEK ONE THERAPY: TWO TABLETS ON DAYS ONE TO THREE AND ONE TABLET ON DAYS FOUR AND FIVE
     Route: 048
     Dates: start: 20210628

REACTIONS (2)
  - Haematemesis [Recovered/Resolved]
  - Oropharyngeal pain [Recovered/Resolved]

NARRATIVE: CASE EVENT DATE: 20210704
